FAERS Safety Report 8943277 (Version 3)
Quarter: 2012Q4

REPORT INFORMATION
  Report Type: 
  Country: SE (occurrence: SE)
  Receive Date: 20121204
  Receipt Date: 20121228
  Transmission Date: 20130627
  Serious: Yes (Other)
  Sender: FDA-Public Use
  Company Number: SE-AMGEN-SWECT2012077227

PATIENT
  Age: 49 Year
  Sex: Female

DRUGS (4)
  1. ETANERCEPT [Suspect]
     Indication: JUVENILE ARTHRITIS
     Dosage: 50 mg, weekly
     Route: 058
     Dates: start: 20121011, end: 20121119
  2. PREDNISOLON                        /00016201/ [Concomitant]
     Dosage: 5 mg, UNK
     Dates: start: 20121011
  3. IPREN [Concomitant]
     Dosage: UNK
     Dates: start: 20121011
  4. METHOTREXATE [Concomitant]
     Dosage: 20 mg, UNK
     Dates: start: 20121011

REACTIONS (3)
  - Dyspnoea [Recovered/Resolved]
  - Rash erythematous [Recovered/Resolved]
  - Pruritus [Recovered/Resolved]
